FAERS Safety Report 11733774 (Version 1)
Quarter: 2015Q4

REPORT INFORMATION
  Report Type: Spontaneous
  Country: BR (occurrence: BR)
  Receive Date: 20151113
  Receipt Date: 20151113
  Transmission Date: 20160304
  Serious: Yes (Hospitalization)
  Sender: FDA-Public Use
  Company Number: BR-ROCHE-1660495

PATIENT
  Age: 13 Year
  Sex: Male
  Weight: 34 kg

DRUGS (3)
  1. PULMOZYME [Suspect]
     Active Substance: DORNASE ALFA
     Indication: CYSTIC FIBROSIS
     Dosage: ONE DRUG VIAL IN THE MORNING AND TWO VIALS AT NIGHT, IN INHALATION
     Route: 065
  2. PANCREATIN [Concomitant]
     Active Substance: PANCRELIPASE
     Route: 065
     Dates: start: 2012
  3. EPHYNAL [Concomitant]
     Active Substance: .ALPHA.-TOCOPHEROL ACETATE
     Dosage: THREE TIMES A WEEK
     Route: 065

REACTIONS (2)
  - Bacterial infection [Unknown]
  - Appendicitis [Unknown]
